FAERS Safety Report 17568752 (Version 1)
Quarter: 2020Q1

REPORT INFORMATION
  Report Type: Spontaneous
  Country: NL (occurrence: NL)
  Receive Date: 20200321
  Receipt Date: 20200321
  Transmission Date: 20200409
  Serious: Yes (Other)
  Sender: FDA-Public Use
  Company Number: NL-ACCORD-176759

PATIENT
  Sex: Female
  Weight: 69 kg

DRUGS (4)
  1. CALCIUM CARBONATE/COLECALCIFEROL [Concomitant]
     Active Substance: CALCIUM CARBONATE\CHOLECALCIFEROL
     Dosage: 2.5 G (GRAM) / 800 UNITS
  2. ZOLEDRONIC ACID [Suspect]
     Active Substance: ZOLEDRONIC ACID
     Indication: OSTEOPOROSIS
     Dosage: INFUSION LIQUID, 0.05 MG / ML (MILLIGRAMS PER MILLILITER), 1 TIME PER YEAR, 5 MG
     Dates: start: 20200106, end: 20200106
  3. TRAMADOL. [Concomitant]
     Active Substance: TRAMADOL
     Dosage: 50 MG (MILLIGRAM)
  4. OMEPRAZOLE. [Concomitant]
     Active Substance: OMEPRAZOLE
     Dosage: 20 MG (MILLIGRAM)

REACTIONS (1)
  - Atrial fibrillation [Not Recovered/Not Resolved]
